FAERS Safety Report 21518928 (Version 2)
Quarter: 2025Q2

REPORT INFORMATION
  Report Type: Report from Study
  Country: CA (occurrence: CA)
  Receive Date: 20221028
  Receipt Date: 20250507
  Transmission Date: 20250716
  Serious: Yes (Hospitalization)
  Sender: TAKEDA
  Company Number: CA-TAKEDA-2022TUS027872

PATIENT
  Sex: Male

DRUGS (19)
  1. HUMAN IMMUNOGLOBULIN G [Suspect]
     Active Substance: HUMAN IMMUNOGLOBULIN G
     Indication: Primary immunodeficiency syndrome
     Dosage: 15 GRAM, 1/WEEK
     Dates: start: 20210816
  2. HUMAN IMMUNOGLOBULIN G [Suspect]
     Active Substance: HUMAN IMMUNOGLOBULIN G
     Dosage: 15 GRAM, 1/WEEK
  3. HUMAN IMMUNOGLOBULIN G [Suspect]
     Active Substance: HUMAN IMMUNOGLOBULIN G
     Dosage: 18 GRAM, 1/WEEK
  4. HUMAN IMMUNOGLOBULIN G [Suspect]
     Active Substance: HUMAN IMMUNOGLOBULIN G
     Dosage: 18 GRAM, 1/WEEK
  5. BECLOMETHASONE [Concomitant]
     Active Substance: BECLOMETHASONE
  6. IPRATROPIUM [Concomitant]
     Active Substance: IPRATROPIUM
  7. ELAVIL [Concomitant]
     Active Substance: AMITRIPTYLINE HYDROCHLORIDE
     Indication: Migraine prophylaxis
     Dosage: 50 MILLIGRAM, QD
  8. TAMSULOSIN [Concomitant]
     Active Substance: TAMSULOSIN
     Indication: Bladder disorder
     Dosage: 0.8 MILLIGRAM, QD
  9. DUTASTERIDE [Concomitant]
     Active Substance: DUTASTERIDE
     Indication: Prostatic adenoma
     Dosage: 0.5 MILLIGRAM, QD
  10. BUPROPION [Concomitant]
     Active Substance: BUPROPION
     Indication: Bipolar disorder
  11. ROSUVASTATIN [Concomitant]
     Active Substance: ROSUVASTATIN
     Indication: Blood cholesterol
  12. ABILIFY [Concomitant]
     Active Substance: ARIPIPRAZOLE
     Indication: Bipolar disorder
     Dosage: 15 MILLIGRAM, QD
  13. CELECOXIB [Concomitant]
     Active Substance: CELECOXIB
     Indication: Pain
  14. PANTOPRAZOLE [Concomitant]
     Active Substance: PANTOPRAZOLE
     Indication: Dyspepsia
     Dosage: 20 MILLIGRAM, QD
  15. ASPIRIN [Concomitant]
     Active Substance: ASPIRIN
     Indication: Blood disorder
     Dosage: 81 MILLIGRAM, QD
  16. ZOPICLONE [Concomitant]
     Active Substance: ZOPICLONE
     Indication: Sleep disorder
  17. CLONAZEPAM [Concomitant]
     Active Substance: CLONAZEPAM
     Indication: Anxiety
  18. SYMBICORT [Concomitant]
     Active Substance: BUDESONIDE\FORMOTEROL FUMARATE DIHYDRATE
  19. AZITHROMYCIN [Concomitant]
     Active Substance: AZITHROMYCIN
     Indication: Bronchiectasis

REACTIONS (7)
  - COVID-19 [Recovered/Resolved]
  - Blood immunoglobulin G abnormal [Not Recovered/Not Resolved]
  - Road traffic accident [Not Recovered/Not Resolved]
  - Product adhesion issue [Unknown]
  - Device leakage [Unknown]
  - General physical condition abnormal [Unknown]
  - Hyperhidrosis [Unknown]

NARRATIVE: CASE EVENT DATE: 20220101
